FAERS Safety Report 20774813 (Version 3)
Quarter: 2022Q4

REPORT INFORMATION
  Report Type: Spontaneous
  Country: US (occurrence: US)
  Receive Date: 20220502
  Receipt Date: 20221028
  Transmission Date: 20230113
  Serious: Yes (Other)
  Sender: FDA-Public Use
  Company Number: US-HERON THERAPEUTICS, INC-HRTX-2022-000793

PATIENT
  Sex: Male

DRUGS (4)
  1. ZYNRELEF [Suspect]
     Active Substance: BUPIVACAINE\MELOXICAM
     Indication: Postoperative analgesia
     Dosage: 3 MILLILITER, SINGLE
     Route: 065
  2. MARCAINE [Concomitant]
     Active Substance: BUPIVACAINE HYDROCHLORIDE
     Indication: Postoperative analgesia
     Dosage: 22.5 MILLILITER
  3. LIDOCAINE [Concomitant]
     Active Substance: LIDOCAINE
     Indication: Postoperative analgesia
     Dosage: 22.5 MILLILITER
  4. EPINEPHRINE [Concomitant]
     Active Substance: EPINEPHRINE
     Indication: Postoperative analgesia

REACTIONS (2)
  - Wound necrosis [Recovering/Resolving]
  - Seroma [Recovering/Resolving]
